FAERS Safety Report 20997280 (Version 1)
Quarter: 2022Q2

REPORT INFORMATION
  Report Type: Spontaneous
  Country: US (occurrence: US)
  Receive Date: 20220623
  Receipt Date: 20220623
  Transmission Date: 20220721
  Serious: No
  Sender: FDA-Public Use
  Company Number: US-AMGEN-USASP2022103685

PATIENT
  Sex: Female

DRUGS (1)
  1. PROLIA [Suspect]
     Active Substance: DENOSUMAB
     Indication: Osteoporosis
     Dosage: UNK
     Route: 065

REACTIONS (7)
  - Back pain [Unknown]
  - Arthralgia [Unknown]
  - Cystitis [Unknown]
  - Headache [Unknown]
  - Fluid retention [Unknown]
  - Mobility decreased [Unknown]
  - Weight increased [Unknown]
